FAERS Safety Report 6042649-9 (Version None)
Quarter: 2009Q1

REPORT INFORMATION
  Report Type: 
  Country: None (occurrence: None)
  Receive Date: 20090119
  Receipt Date: 20090108
  Transmission Date: 20090719
  Serious: Yes (Other)
  Sender: FDA-Public Use
  Company Number: PHHY2009MX00980

PATIENT
  Age: 60 Year
  Sex: Female

DRUGS (2)
  1. TRILEPTAL [Suspect]
     Indication: EPILEPSY
     Dosage: 2 TABS (300 MG)/DAY
     Dates: start: 20070301, end: 20080901
  2. TRILEPTAL [Suspect]
     Dosage: 0.5 TABLET (300 MG)/DAY
     Dates: start: 20090101

REACTIONS (1)
  - TYPHOID FEVER [None]
